FAERS Safety Report 4468318-4 (Version None)
Quarter: 2004Q4

REPORT INFORMATION
  Report Type: 
  Country: None (occurrence: None)
  Receive Date: 20041007
  Receipt Date: 20030107
  Transmission Date: 20050328
  Serious: Yes (Disabling)
  Sender: FDA-Public Use
  Company Number: US-ROCHE-328932

PATIENT
  Age: 42 Year
  Sex: Female

DRUGS (11)
  1. KLONOPIN [Suspect]
     Indication: PANIC DISORDER
     Route: 048
  2. KLONOPIN [Interacting]
     Route: 048
  3. KLONOPIN [Interacting]
     Route: 048
     Dates: start: 20010915
  4. SEPTRA [Interacting]
     Route: 065
  5. DIFLUCAN [Interacting]
     Indication: DRUG USE FOR UNKNOWN INDICATION
     Route: 065
  6. TEQUIN [Interacting]
     Route: 065
  7. OXYCONTIN [Concomitant]
     Indication: PAIN
     Route: 048
  8. ZANAFLEX [Concomitant]
     Indication: DRUG USE FOR UNKNOWN INDICATION
  9. CLONAZEPAM [Concomitant]
     Dosage: GENERIC FORM, USED ON OCCASSIONS.
  10. AMBIEN [Concomitant]
     Indication: INSOMNIA
  11. VICODIN [Concomitant]
     Indication: PAIN
     Dates: end: 20010415

REACTIONS (37)
  - ABNORMAL DREAMS [None]
  - AMNESIA [None]
  - APHONIA [None]
  - CHEST DISCOMFORT [None]
  - CHEST PAIN [None]
  - CHOKING [None]
  - CONFUSIONAL STATE [None]
  - CONTUSION [None]
  - DEPRESSED LEVEL OF CONSCIOUSNESS [None]
  - DIZZINESS [None]
  - DRUG INTERACTION [None]
  - DYSARTHRIA [None]
  - EYE PAIN [None]
  - EYE ROLLING [None]
  - FACIAL BONES FRACTURE [None]
  - FALL [None]
  - FUNGAL INFECTION [None]
  - GAIT DISTURBANCE [None]
  - GRAND MAL CONVULSION [None]
  - HAIR GROWTH ABNORMAL [None]
  - HAIR TEXTURE ABNORMAL [None]
  - HALLUCINATION [None]
  - HOMICIDAL IDEATION [None]
  - HYPOTENSION [None]
  - INSOMNIA [None]
  - LOSS OF EMPLOYMENT [None]
  - MEDICATION ERROR [None]
  - MOLE EXCISION [None]
  - MUSCLE ATROPHY [None]
  - PARANOIA [None]
  - PSYCHIATRIC SYMPTOM [None]
  - RASH GENERALISED [None]
  - SPEECH DISORDER [None]
  - TOOTH INJURY [None]
  - UNEVALUABLE EVENT [None]
  - UPPER LIMB FRACTURE [None]
  - WEIGHT DECREASED [None]
